FAERS Safety Report 8796354 (Version 2)
Quarter: 2012Q4

REPORT INFORMATION
  Report Type: 
  Country: FR (occurrence: FR)
  Receive Date: 20120920
  Receipt Date: 20120924
  Transmission Date: 20130627
  Serious: Yes (Death)
  Sender: FDA-Public Use
  Company Number: PHHY2012FR081340

PATIENT
  Age: 52 Year
  Sex: Male

DRUGS (4)
  1. TASIGNA [Suspect]
     Dosage: 150 mg, BID
     Route: 048
     Dates: start: 20120330
  2. DOGMATIL [Concomitant]
  3. NORDAZ [Concomitant]
  4. NOCTRAN [Concomitant]

REACTIONS (1)
  - Cardiac arrest [Fatal]
